FAERS Safety Report 5826650-3 (Version None)
Quarter: 2008Q3

REPORT INFORMATION
  Report Type: 
  Country: None (occurrence: None)
  Receive Date: 20080730
  Receipt Date: 20080724
  Transmission Date: 20090109
  Serious: Yes (Other)
  Sender: FDA-Public Use
  Company Number: GB-JNJFOC-20080705881

PATIENT
  Age: 10 Year
  Sex: Male
  Weight: 25 kg

DRUGS (8)
  1. RISPERDAL [Suspect]
     Route: 048
  2. RISPERDAL [Suspect]
     Indication: DRUG USE FOR UNKNOWN INDICATION
     Route: 048
  3. RISPERIDONE [Suspect]
     Indication: DRUG USE FOR UNKNOWN INDICATION
     Dosage: DOSE REDUCED TO HALF ON EVENING OF 08-JUL-08.
     Route: 048
  4. ACETAMINOPHEN [Concomitant]
     Route: 065
  5. ALBUTEROL [Concomitant]
     Route: 055
  6. SERETIDE [Concomitant]
     Route: 055
  7. FLUTICASONE PROPIONATE [Concomitant]
     Route: 065
  8. SALMETEROL [Concomitant]
     Route: 065

REACTIONS (3)
  - HEADACHE [None]
  - INITIAL INSOMNIA [None]
  - NAUSEA [None]
